FAERS Safety Report 6309728-X (Version None)
Quarter: 2009Q3

REPORT INFORMATION
  Report Type: 
  Country: None (occurrence: None)
  Receive Date: 20090814
  Receipt Date: 20090812
  Transmission Date: 20100115
  Serious: Yes (Death, Other)
  Sender: FDA-Public Use
  Company Number: PHEH2009US08302

PATIENT
  Sex: Male

DRUGS (9)
  1. GLEEVEC [Suspect]
     Indication: CHRONIC MYELOID LEUKAEMIA
     Dosage: 400 MG, QD
     Route: 048
     Dates: start: 20090114
  2. CALCITRIOL [Concomitant]
     Dosage: 0.25 UNK, QD
  3. SYMBICORT [Concomitant]
     Dosage: 160, TWO PUFFS DAILY
  4. ZOLOFT [Concomitant]
     Dosage: 50 MG, QD
     Route: 048
  5. LIPITOR [Concomitant]
     Dosage: 10 MG, QD
  6. LASIX [Concomitant]
     Dosage: 40 MG, QD
  7. PLAVIX [Concomitant]
     Dosage: 75 MG, QD
     Route: 048
  8. LANTUS [Concomitant]
     Dosage: 15 U, QD
  9. LOPRESSOR [Concomitant]
     Dosage: UNK
     Route: 048

REACTIONS (9)
  - ASTHENIA [None]
  - ATRIAL FIBRILLATION [None]
  - DEATH [None]
  - DIET REFUSAL [None]
  - HAEMATOCRIT DECREASED [None]
  - HAEMOGLOBIN DECREASED [None]
  - PLATELET COUNT DECREASED [None]
  - RENAL FAILURE CHRONIC [None]
  - RESPIRATORY FAILURE [None]
